FAERS Safety Report 7202799 (Version 7)
Quarter: 2014Q3

REPORT INFORMATION
  Report Type: Spontaneous
  Country: JP (occurrence: JP)
  Receive Date: 20091207
  Receipt Date: 20140828
  Transmission Date: 20150326
  Serious: Yes (Death, Other)
  Sender: FDA-Public Use
  Company Number: PHHY2009JP53356

PATIENT
  Age: 67 Year
  Sex: Female

DRUGS (4)
  1. ACLARUBICIN [Suspect]
     Active Substance: ACLARUBICIN
  2. GLIVEC [Suspect]
     Active Substance: IMATINIB MESYLATE
     Indication: ACUTE BIPHENOTYPIC LEUKAEMIA
     Dosage: 400 MG, PERDAY
     Route: 048
  3. CHEMOTHERAPEUTICS,OTHER [Concomitant]
     Active Substance: UNSPECIFIED INGREDIENT
     Indication: ACUTE BIPHENOTYPIC LEUKAEMIA
  4. ENOCITABINE [Suspect]
     Active Substance: ENOCITABINE

REACTIONS (13)
  - Septic shock [Fatal]
  - Eye disorder [Fatal]
  - Loss of consciousness [Fatal]
  - Neutropenia [Not Recovered/Not Resolved]
  - Skin discolouration [Fatal]
  - Bone marrow failure [Unknown]
  - Skin atrophy [Fatal]
  - Periorbital oedema [Fatal]
  - Ecthyma [Fatal]
  - Peripheral vascular disorder [Fatal]
  - Blister [Fatal]
  - Pseudomonal sepsis [Fatal]
  - Pyrexia [Fatal]
